FAERS Safety Report 5315411-X (Version None)
Quarter: 2007Q2

REPORT INFORMATION
  Report Type: 
  Country: None (occurrence: None)
  Receive Date: 20070503
  Receipt Date: 20070424
  Transmission Date: 20071010
  Serious: Yes (Other)
  Sender: FDA-Public Use
  Company Number: PHEH2007US04418

PATIENT
  Age: 58 Year

DRUGS (2)
  1. ZELNORM [Suspect]
     Indication: IRRITABLE BOWEL SYNDROME
     Dates: end: 20070406
  2. MIGRAINE MEDICATIONS [Suspect]

REACTIONS (2)
  - DYSARTHRIA [None]
  - HEMIPARESIS [None]
